FAERS Safety Report 10568134 (Version 1)
Quarter: 2014Q4

REPORT INFORMATION
  Report Type: Spontaneous
  Country: US (occurrence: None)
  Receive Date: 20141028
  Receipt Date: 20141028
  Transmission Date: 20150529
  Serious: Yes (Other)
  Sender: FDA-Public Use
  Company Number: 2125541

PATIENT
  Age: 57 Year
  Sex: Male
  Weight: 81.8 kg

DRUGS (3)
  1. CIPROFLOXACIN. [Suspect]
     Active Substance: CIPROFLOXACIN
     Indication: ANTIBIOTIC PROPHYLAXIS
     Dosage: VERY LITTLE GIVEN?INTRAVENOUS DRIP
     Route: 041
     Dates: start: 20131220, end: 20131220
  2. SALINE [Concomitant]
     Active Substance: SODIUM CHLORIDE
  3. LIPITOR [Concomitant]
     Active Substance: ATORVASTATIN CALCIUM

REACTIONS (2)
  - Hypersensitivity [None]
  - Skin burning sensation [None]

NARRATIVE: CASE EVENT DATE: 20131220
